FAERS Safety Report 17414591 (Version 2)
Quarter: 2020Q1

REPORT INFORMATION
  Report Type: Spontaneous
  Country: US (occurrence: US)
  Receive Date: 20200213
  Receipt Date: 20200316
  Transmission Date: 20200409
  Serious: No
  Sender: FDA-Public Use
  Company Number: US-ELI_LILLY_AND_COMPANY-US202001007792

PATIENT
  Age: 12 Year
  Sex: Male

DRUGS (2)
  1. OLUMIANT [Suspect]
     Active Substance: BARICITINIB
     Indication: PRODUCT USED FOR UNKNOWN INDICATION
     Dosage: 1.5 DOSAGE FORM, BID
     Route: 065
     Dates: start: 202001
  2. OLUMIANT [Suspect]
     Active Substance: BARICITINIB
     Dosage: 6 MG, DAILY
     Route: 048
     Dates: start: 202003

REACTIONS (3)
  - Off label use [Unknown]
  - Prescribed overdose [Unknown]
  - Extra dose administered [Unknown]

NARRATIVE: CASE EVENT DATE: 202001
